FAERS Safety Report 25419077 (Version 1)
Quarter: 2025Q2

REPORT INFORMATION
  Report Type: Report from Study
  Country: EG (occurrence: EG)
  Receive Date: 20250610
  Receipt Date: 20250610
  Transmission Date: 20250717
  Serious: Yes (Hospitalization)
  Sender: TAIHO ONCOLOGY INC
  Company Number: EG-SERVIER-S25007770

PATIENT
  Age: 45 Year
  Sex: Female
  Weight: 33 kg

DRUGS (2)
  1. LONSURF [Suspect]
     Active Substance: TIPIRACIL HYDROCHLORIDE\TRIFLURIDINE
     Indication: Colorectal cancer metastatic
     Dosage: 40 MG, BID
     Route: 048
     Dates: start: 202504
  2. COLOMUCIL [Concomitant]
     Indication: Product used for unknown indication
     Route: 065

REACTIONS (4)
  - Immunosuppression [Recovered/Resolved]
  - Red blood cell count decreased [Recovered/Resolved]
  - Inflammation [Recovered/Resolved]
  - Deep vein thrombosis [Recovered/Resolved]

NARRATIVE: CASE EVENT DATE: 20250426
